FAERS Safety Report 7820174-X (Version None)
Quarter: 2011Q4

REPORT INFORMATION
  Report Type: 
  Country: None (occurrence: None)
  Receive Date: 20111018
  Receipt Date: 20111017
  Transmission Date: 20120403
  Serious: Yes (Other)
  Sender: FDA-Public Use
  Company Number: US-VERTEX PHARMACEUTICALS INC.-AE-2011-001989

PATIENT
  Sex: Male
  Weight: 113.5 kg

DRUGS (7)
  1. LACTULOSE [Concomitant]
     Route: 048
  2. RIBASPHERE [Concomitant]
     Indication: HEPATITIS C
     Route: 048
     Dates: start: 20110928
  3. NADOLOL [Concomitant]
     Route: 048
  4. PEGASYS [Concomitant]
     Indication: HEPATITIS C
     Route: 058
     Dates: start: 20110927
  5. PROTONIX [Concomitant]
     Route: 048
  6. SPIRONOLACATONE [Concomitant]
     Route: 048
  7. INCIVEK [Suspect]
     Indication: HEPATITIS C
     Route: 048
     Dates: start: 20110928

REACTIONS (1)
  - HEPATIC ENCEPHALOPATHY [None]
